FAERS Safety Report 12966019 (Version 2)
Quarter: 2016Q4

REPORT INFORMATION
  Report Type: Spontaneous
  Country: IN (occurrence: IN)
  Receive Date: 20161122
  Receipt Date: 20161123
  Transmission Date: 20170207
  Serious: Yes (Other)
  Sender: FDA-Public Use
  Company Number: IN-PFIZER INC-2016536166

PATIENT
  Age: 47 Year
  Sex: Female

DRUGS (1)
  1. CAMPTO [Suspect]
     Active Substance: IRINOTECAN
     Indication: BILE DUCT CANCER
     Dosage: 200 MG, CYCLIC
     Route: 042
     Dates: start: 20161111

REACTIONS (3)
  - Product use issue [Unknown]
  - Second primary malignancy [Unknown]
  - Adenocarcinoma [Unknown]
